FAERS Safety Report 7130531-5 (Version None)
Quarter: 2010Q4

REPORT INFORMATION
  Report Type: 
  Country: None (occurrence: None)
  Receive Date: 20101201
  Receipt Date: 20101020
  Transmission Date: 20110411
  Serious: Yes (Other)
  Sender: FDA-Public Use
  Company Number: PE-SANOFI-AVENTIS-2010SA071991

PATIENT
  Age: 50 Year
  Sex: Male

DRUGS (4)
  1. MULTAQ [Suspect]
     Indication: ATRIAL FIBRILLATION
     Route: 048
     Dates: start: 20100801
  2. CIPROFLOXACIN [Suspect]
     Route: 048
     Dates: start: 20101020, end: 20101021
  3. IRBESARTAN [Concomitant]
     Route: 048
  4. CLOPIDOGREL [Concomitant]
     Route: 048

REACTIONS (2)
  - OFF LABEL USE [None]
  - SYNCOPE [None]
